FAERS Safety Report 8028464 (Version 6)
Quarter: 2013Q4

REPORT INFORMATION
  Report Type: Spontaneous
  Country: US (occurrence: US)
  Receive Date: 20110711
  Receipt Date: 20131112
  Transmission Date: 20140711
  Serious: Yes (Hospitalization, Disabling, Other)
  Sender: FDA-Public Use
  Company Number: US-ASTRAZENECA-2011SE39974

PATIENT
  Age: 66 Year
  Sex: Male
  Weight: 68 kg

DRUGS (9)
  1. CRESTOR [Suspect]
     Indication: CARDIAC DISORDER
     Route: 048
     Dates: end: 201310
  2. DILTIAZEM [Concomitant]
     Indication: HYPERTENSION
  3. MECLIZINE [Concomitant]
     Indication: DIZZINESS
  4. HUMALOG [Concomitant]
     Indication: BLOOD GLUCOSE ABNORMAL
  5. LANTUS [Concomitant]
     Indication: BLOOD GLUCOSE ABNORMAL
     Dosage: 40 UNITS
  6. INSULIN [Concomitant]
     Indication: BLOOD GLUCOSE ABNORMAL
  7. ALPRAZOLAM [Concomitant]
     Indication: SLEEP DISORDER
  8. DROPS IN EYE [Concomitant]
  9. POTASSIUM [Concomitant]

REACTIONS (21)
  - Cerebrovascular accident [Unknown]
  - Cardiac disorder [Unknown]
  - Abasia [Unknown]
  - Loss of consciousness [Unknown]
  - Fall [Unknown]
  - Blindness [Unknown]
  - Malaise [Unknown]
  - Blood glucose abnormal [Unknown]
  - Hearing impaired [Unknown]
  - Impaired driving ability [Unknown]
  - Adverse event [Unknown]
  - Balance disorder [Unknown]
  - Gait disturbance [Unknown]
  - Activities of daily living impaired [Unknown]
  - Chest pain [Unknown]
  - Fatigue [Unknown]
  - Memory impairment [Unknown]
  - Dizziness [Unknown]
  - Diabetes mellitus [Unknown]
  - Off label use [Unknown]
  - Drug dose omission [Unknown]
